FAERS Safety Report 8919735 (Version 1)
Quarter: 2012Q4

REPORT INFORMATION
  Report Type: 
  Country: US (occurrence: US)
  Receive Date: 20121121
  Receipt Date: 20121121
  Transmission Date: 20130627
  Serious: No
  Sender: FDA-Public Use
  Company Number: US-BIOGENIDEC-2012BI052605

PATIENT
  Sex: Female

DRUGS (1)
  1. AVONEX [Suspect]
     Indication: MULTIPLE SCLEROSIS
     Route: 030
     Dates: start: 20091214

REACTIONS (11)
  - Adverse event [Unknown]
  - Burnout syndrome [Unknown]
  - Stress [Unknown]
  - Tremor [Unknown]
  - Feeling jittery [Unknown]
  - Nervousness [Unknown]
  - Malaise [Unknown]
  - Fatigue [Unknown]
  - Emotional disorder [Unknown]
  - Anxiety [Unknown]
  - Insomnia [Unknown]
